FAERS Safety Report 18751555 (Version 7)
Quarter: 2021Q3

REPORT INFORMATION
  Report Type: Report from Study
  Country: IL (occurrence: IL)
  Receive Date: 20210118
  Receipt Date: 20210713
  Transmission Date: 20211014
  Serious: Yes (Hospitalization, Other)
  Sender: FDA-Public Use
  Company Number: NVSC2021IL007906

PATIENT
  Age: 34 Year
  Sex: Female
  Weight: 56 kg

DRUGS (7)
  1. CRIZANLIZUMAB [Suspect]
     Active Substance: CRIZANLIZUMAB
     Indication: SICKLE CELL DISEASE
     Dosage: 280 MG, UNKNOWN
     Route: 042
     Dates: start: 20201115, end: 20201227
  2. PARACETAMOL [Concomitant]
     Active Substance: ACETAMINOPHEN
     Indication: PRODUCT USED FOR UNKNOWN INDICATION
     Dosage: UNK (1 GR)
     Route: 048
  3. CRIZANLIZUMAB [Suspect]
     Active Substance: CRIZANLIZUMAB
     Dosage: 275 MG
     Route: 042
     Dates: end: 20210404
  4. LORATADINE. [Concomitant]
     Active Substance: LORATADINE
     Indication: PRODUCT USED FOR UNKNOWN INDICATION
     Dosage: UNK
     Route: 048
  5. OPTALGIN [Concomitant]
     Active Substance: METAMIZOLE
     Indication: PRODUCT USED FOR UNKNOWN INDICATION
     Dosage: UNK
     Route: 065
  6. SALINE [Concomitant]
     Active Substance: SODIUM CHLORIDE
     Indication: PRODUCT USED FOR UNKNOWN INDICATION
     Dosage: 1 L
     Route: 042
  7. CRIZANLIZUMAB [Suspect]
     Active Substance: CRIZANLIZUMAB
     Dosage: 5 MG/KG (270 MG IN TOTAL)
     Route: 042
     Dates: start: 20210502

REACTIONS (6)
  - Bone pain [Recovered/Resolved]
  - Jugular vein thrombosis [Recovering/Resolving]
  - Bone pain [Recovered/Resolved]
  - Infusion related reaction [Unknown]
  - Sickle cell anaemia with crisis [Unknown]
  - Chest pain [Unknown]

NARRATIVE: CASE EVENT DATE: 20210110
